FAERS Safety Report 10051716 (Version 4)
Quarter: 2014Q2

REPORT INFORMATION
  Report Type: Spontaneous
  Country: US (occurrence: US)
  Receive Date: 20140401
  Receipt Date: 20140522
  Transmission Date: 20141212
  Serious: Yes (Life-Threatening, Hospitalization, Other)
  Sender: FDA-Public Use
  Company Number: PHHY2012US018549

PATIENT
  Age: 58 Year
  Sex: Female
  Weight: 108.9 kg

DRUGS (40)
  1. HYDROXYZINE [Suspect]
     Dosage: 25 MG, Q8H
  2. ENOXAPARIN [Suspect]
     Dosage: UNK UKN, UNK
     Route: 042
  3. CARISOPRODOL [Suspect]
     Dosage: UNK UKN, UNK
  4. CARVEDILOL [Suspect]
  5. ORPHENADRINE [Suspect]
  6. FUROSEMIDE [Suspect]
  7. MORPHINE [Suspect]
     Indication: PAIN
     Dosage: 12.5 UG, DAILY
     Route: 037
  8. CLONIDINE [Suspect]
     Dosage: UNK UKN, UNK
     Route: 037
  9. ATARAX//HYDROXYZINE [Suspect]
     Indication: TREMOR
     Dosage: 25 MG, PRN
  10. COREG [Suspect]
     Dosage: 1 DF, BID
     Route: 048
     Dates: end: 20110928
  11. DILAUDID [Suspect]
     Dosage: 1 DF, Q4H
     Route: 048
  12. KLONOPIN [Suspect]
     Dosage: 1 DF, Q12H
  13. NORVASC [Suspect]
     Dosage: 5 MG, QHS
  14. MORPHINE [Suspect]
     Dosage: UNK UKN, UNK (IMMEDIATE RELEASE)
  15. MORPHINE [Suspect]
     Dosage: 2 MG, UNK (EVERY 2 HOURS AS NEEDED)
     Route: 042
  16. OXYCODONE [Suspect]
     Indication: PAIN
     Dosage: 30 MG, Q3H
  17. KEFLEX                                  /USA/ [Suspect]
     Dosage: 500 MG, QID
  18. SOMA [Suspect]
     Dosage: UNK UKN, UNK (350MG EVERY 6 HOURS OR 1 EVERY 4 HOURS AS NEEDED)
  19. FENTANYL [Suspect]
     Indication: PAIN
     Dosage: UNK UKN, UNK (150 MCG/HR EVERY 72 HOURS)
  20. FENTANYL [Suspect]
     Dosage: UNK UKN, UNK (200 MCG/HR EVERY 72 HOURS)
  21. DILANTIN//PHENYTOIN [Suspect]
     Indication: NEURALGIA
     Dosage: UNK UKN (100MG OR 200MG), TID
  22. DILANTIN//PHENYTOIN [Suspect]
     Dosage: UNK UKN, UNK (INCREASED DOSING IN SLOW FASHION)
  23. DURAGESIC [Suspect]
     Dosage: 200 UG, Q72H
  24. MORPHINE SULFATE [Suspect]
     Dosage: UNK UKN, UNK
     Route: 042
  25. PHENERGAN                          /00404701/ [Suspect]
     Dosage: 12.5 MG TABLET, EVERY 6 HOURS (PRN)
  26. PHENERGAN                          /00404701/ [Suspect]
     Dosage: 25 MG SUPPOSITORIES, EVERY 6 HOURS AS NEEDED
     Route: 054
  27. MORPHINE SULFATE [Suspect]
     Dosage: 30 MG, UNK (EVERY 4 HOURS AS NEEDED)
  28. MORPHINE SULFATE [Suspect]
     Dosage: 1 DF (100MG TABLET), BID (TAKEN TWICE A DAY)
  29. PHENYTOIN [Suspect]
  30. DIOVAN [Suspect]
     Dosage: 320 MG, QD
     Route: 048
     Dates: end: 20110928
  31. LIORESAL INTRATECAL [Suspect]
     Indication: PAIN
     Dosage: UNK UKN, UNK
     Route: 037
  32. AMLODIPINE [Suspect]
     Dosage: 10 MG, QHS
  33. AMLODIPINE [Suspect]
     Dosage: UNK UKN, UNK
  34. METOCLOPRAMIDE [Suspect]
     Dosage: UNK UKN, UNK
     Route: 042
  35. VALSARTAN [Suspect]
  36. PARACETAMOL [Suspect]
     Dosage: UNK UKN, UNK
  37. IBUPROFEN [Suspect]
     Dosage: 200 MG, UNK
     Dates: end: 20110924
  38. CLONAZEPAM [Suspect]
     Dosage: 2 MG, QHS
  39. PANTOPRAZOLE [Suspect]
     Dosage: UNK UKN, UNK
     Route: 048
  40. CLONIDINE [Suspect]
     Dosage: 1 DF, BID
     Route: 048
     Dates: end: 20110928

REACTIONS (88)
  - Intervertebral disc degeneration [Unknown]
  - Nuclear magnetic resonance imaging abnormal [Unknown]
  - Electrocardiogram abnormal [Unknown]
  - Tooth fracture [Unknown]
  - Post procedural haemorrhage [Unknown]
  - Foreign body reaction [Unknown]
  - Extradural abscess [Unknown]
  - Wound dehiscence [Unknown]
  - Purulent discharge [Unknown]
  - Urinary casts [Unknown]
  - Arthritis bacterial [Unknown]
  - Osteomyelitis [Unknown]
  - Contusion [Unknown]
  - Throat irritation [Unknown]
  - Hypertensive encephalopathy [Unknown]
  - Neuropathy peripheral [Unknown]
  - Anxiety disorder [Unknown]
  - Left ventricular hypertrophy [Unknown]
  - Impaired gastric emptying [Unknown]
  - Lumbar spinal stenosis [Unknown]
  - Skin infection [Recovered/Resolved]
  - Influenza [Unknown]
  - Wound infection staphylococcal [Unknown]
  - Blood albumin decreased [Unknown]
  - Staphylococcus test positive [Unknown]
  - Red blood cell sedimentation rate increased [Unknown]
  - C-reactive protein increased [Unknown]
  - Blood calcium decreased [Unknown]
  - Blood glucose increased [Unknown]
  - Globulins increased [Unknown]
  - Hypokalaemia [Unknown]
  - Hyponatraemia [Unknown]
  - Respiratory rate increased [Unknown]
  - Mean cell volume decreased [Unknown]
  - Blood potassium decreased [Unknown]
  - Blood sodium decreased [Unknown]
  - Urinary tract infection [Unknown]
  - Red blood cells urine positive [Unknown]
  - White blood cells urine positive [Unknown]
  - Neutrophil count increased [Unknown]
  - Haemoglobin decreased [Unknown]
  - Hypovolaemia [Unknown]
  - Hyperpathia [Unknown]
  - Spinal osteoarthritis [Unknown]
  - Paralysis [Unknown]
  - Obesity [Unknown]
  - Haematocrit decreased [Unknown]
  - Myositis [Unknown]
  - Soft tissue infection [Not Recovered/Not Resolved]
  - Cellulitis [Unknown]
  - Allodynia [Unknown]
  - Cough [Unknown]
  - Heart rate increased [Unknown]
  - Anaemia [Unknown]
  - Feeling hot [Unknown]
  - Abasia [Unknown]
  - Malaise [Unknown]
  - Dyspnoea [Unknown]
  - Hypertensive crisis [Unknown]
  - Hypoaesthesia [Unknown]
  - Tremor [Unknown]
  - Implant site hypersensitivity [Unknown]
  - Implant site discharge [Unknown]
  - Implant site pain [Not Recovered/Not Resolved]
  - Implant site extravasation [Unknown]
  - Implant site infection [Unknown]
  - Implant site abscess [Unknown]
  - Muscle spasms [Unknown]
  - Pyrexia [Recovered/Resolved]
  - Muscular weakness [Unknown]
  - Neuralgia [Not Recovered/Not Resolved]
  - Pain [Recovering/Resolving]
  - Hypertension [Recovering/Resolving]
  - Pain in extremity [Unknown]
  - Insomnia [Unknown]
  - Dehydration [Unknown]
  - Convulsion [Unknown]
  - Headache [Unknown]
  - Asthenia [Unknown]
  - Paraesthesia [Unknown]
  - Nausea [Recovering/Resolving]
  - Meningitis [Recovering/Resolving]
  - Back pain [Recovering/Resolving]
  - Implant site mass [Unknown]
  - Vomiting [Unknown]
  - Dry mouth [Unknown]
  - Blood magnesium decreased [Unknown]
  - No therapeutic response [Unknown]
